FAERS Safety Report 7209853-5 (Version None)
Quarter: 2011Q1

REPORT INFORMATION
  Report Type: 
  Country: None (occurrence: None)
  Receive Date: 20110104
  Receipt Date: 20101223
  Transmission Date: 20110831
  Serious: Yes (Other)
  Sender: FDA-Public Use
  Company Number: GR-AMGEN-GRCSP2010012503

PATIENT

DRUGS (2)
  1. ETANERCEPT [Suspect]
     Indication: PSORIASIS
     Dosage: UNK
  2. METHOTREXATE [Concomitant]
     Dosage: UNK
     Dates: end: 20090501

REACTIONS (2)
  - ANAEMIA [None]
  - FATIGUE [None]
